FAERS Safety Report 6189892-6 (Version None)
Quarter: 2009Q2

REPORT INFORMATION
  Report Type: 
  Country: None (occurrence: None)
  Receive Date: 20090514
  Receipt Date: 20090508
  Transmission Date: 20091009
  Serious: No
  Sender: FDA-Public Use
  Company Number: DE-ASTRAZENECA-2009PK01245

PATIENT
  Age: 27 Year
  Sex: Female

DRUGS (3)
  1. SEROQUEL XR [Suspect]
     Route: 048
     Dates: start: 20090201
  2. HALOPERIDOL [Concomitant]
  3. GLIANIMON [Concomitant]

REACTIONS (1)
  - LEUKOPENIA [None]
